FAERS Safety Report 15453713 (Version 1)
Quarter: 2018Q4

REPORT INFORMATION
  Report Type: Spontaneous
  Country: FI (occurrence: FI)
  Receive Date: 20181001
  Receipt Date: 20181001
  Transmission Date: 20190204
  Serious: Yes (Disabling, Other)
  Sender: FDA-Public Use
  Company Number: FI-BAUSCH-BL-2018-026457

PATIENT
  Age: 61 Year
  Sex: Male

DRUGS (17)
  1. PREDNISOLON                        /00016201/ [Suspect]
     Active Substance: PREDNISOLONE
     Route: 065
  2. AZAMUN [Suspect]
     Active Substance: AZATHIOPRINE
     Dates: start: 20150224
  3. AZAMUN [Suspect]
     Active Substance: AZATHIOPRINE
     Route: 065
     Dates: start: 20131213
  4. INFLIXIMAB [Concomitant]
     Active Substance: INFLIXIMAB
     Indication: PRODUCT USED FOR UNKNOWN INDICATION
     Dates: start: 20171207
  5. PREDNISOLON                        /00016201/ [Suspect]
     Active Substance: PREDNISOLONE
     Route: 065
     Dates: start: 201703
  6. INFLIXIMAB [Concomitant]
     Active Substance: INFLIXIMAB
     Dates: start: 20171115
  7. AZAMUN [Suspect]
     Active Substance: AZATHIOPRINE
     Route: 065
     Dates: end: 20140826
  8. MERCAPTOPURIN [Concomitant]
     Active Substance: MERCAPTOPURINE
  9. INFLIXIMAB [Concomitant]
     Active Substance: INFLIXIMAB
     Dates: start: 20171227
  10. SOLU-MEDROL [Concomitant]
     Active Substance: METHYLPREDNISOLONE SODIUM SUCCINATE
     Indication: PRODUCT USED FOR UNKNOWN INDICATION
     Dates: start: 20131208
  11. ASACOL [Concomitant]
     Active Substance: MESALAMINE
     Indication: COLITIS ULCERATIVE
  12. PREDNISOLON                        /00016201/ [Suspect]
     Active Substance: PREDNISOLONE
     Route: 065
  13. MERCAPTOPURIN [Concomitant]
     Active Substance: MERCAPTOPURINE
     Dates: start: 20141015
  14. AZAMUN [Suspect]
     Active Substance: AZATHIOPRINE
     Indication: INTERSTITIAL LUNG DISEASE
     Route: 065
     Dates: start: 201404
  15. AZAMUN [Suspect]
     Active Substance: AZATHIOPRINE
     Indication: COLITIS ULCERATIVE
     Route: 065
  16. MERCAPTOPURIN [Concomitant]
     Active Substance: MERCAPTOPURINE
     Indication: PRODUCT USED FOR UNKNOWN INDICATION
  17. PREDNISOLON                        /00016201/ [Suspect]
     Active Substance: PREDNISOLONE
     Indication: COLITIS ULCERATIVE
     Route: 065
     Dates: start: 20131213

REACTIONS (3)
  - B-cell lymphoma [Recovered/Resolved with Sequelae]
  - Liver function test increased [Recovered/Resolved]
  - Chorioretinopathy [Unknown]

NARRATIVE: CASE EVENT DATE: 201403
